FAERS Safety Report 10221122 (Version 1)
Quarter: 2014Q2

REPORT INFORMATION
  Report Type: Report from Study
  Country: US (occurrence: US)
  Receive Date: 20140606
  Receipt Date: 20140606
  Transmission Date: 20141212
  Serious: Yes (Hospitalization)
  Sender: FDA-Public Use
  Company Number: US-MUNDIPHARMA DS AND PHARMACOVIGILANCE-USA-2014-0114529

PATIENT
  Sex: Female

DRUGS (1)
  1. OXY CR TAB [Suspect]
     Indication: BACK DISORDER
     Dosage: 60 MG, BID
     Route: 048
     Dates: start: 200508

REACTIONS (3)
  - Gastric disorder [Unknown]
  - Gallbladder disorder [Unknown]
  - Pancreatic disorder [Unknown]
